FAERS Safety Report 25746826 (Version 2)
Quarter: 2025Q3

REPORT INFORMATION
  Report Type: Spontaneous
  Country: US (occurrence: US)
  Receive Date: 20250901
  Receipt Date: 20250908
  Transmission Date: 20251020
  Serious: Yes (Death, Other)
  Sender: SANDOZ
  Company Number: US-002147023-NVSC2025US135857

PATIENT
  Age: 37 Year
  Sex: Male
  Weight: 80.5 kg

DRUGS (3)
  1. BEDAQUILINE [Suspect]
     Active Substance: BEDAQUILINE
     Indication: Mycobacterium abscessus infection
     Dosage: 200 MG, Q3W (3 TIMES A WEEK, LAST DOSE PRIOR TO AE ON 11 JUL 2025)
     Route: 048
     Dates: start: 20250224, end: 20250711
  2. LAMPRENE [Suspect]
     Active Substance: CLOFAZIMINE
     Indication: Mycobacterium abscessus infection
     Dosage: 100 MG, QD (NG TUBE)
     Route: 048
     Dates: start: 20250201, end: 20250709
  3. ONDANSETRON [Suspect]
     Active Substance: ONDANSETRON
     Indication: Nausea
     Route: 042
     Dates: start: 20250601, end: 20250624

REACTIONS (6)
  - Multiple organ dysfunction syndrome [Fatal]
  - Shock [Fatal]
  - Gastric perforation [Unknown]
  - Concomitant disease aggravated [Not Recovered/Not Resolved]
  - Electrocardiogram QT prolonged [Not Recovered/Not Resolved]
  - Respiratory disorder [Not Recovered/Not Resolved]

NARRATIVE: CASE EVENT DATE: 20250707
